FAERS Safety Report 9074071 (Version 1)
Quarter: 2013Q1

REPORT INFORMATION
  Report Type: Report from Study
  Country: US (occurrence: US)
  Receive Date: 20130129
  Receipt Date: 20130129
  Transmission Date: 20140127
  Serious: No
  Sender: FDA-Public Use
  Company Number: US-ABBOTT-12P-163-0916847-00

PATIENT
  Age: 62 Year
  Sex: Female

DRUGS (12)
  1. HUMIRA 40 MG/0.8 ML PEN [Suspect]
     Indication: RHEUMATOID ARTHRITIS
     Dates: start: 2008
  2. ORENCIA [Suspect]
     Indication: C-REACTIVE PROTEIN INCREASED
     Dosage: TOOK 2 DOSES
  3. DETROL LA [Concomitant]
     Indication: INCONTINENCE
  4. DETROL LA [Concomitant]
     Indication: ROAD TRAFFIC ACCIDENT
  5. LOMOTIL [Concomitant]
     Indication: INCONTINENCE
  6. LOMOTIL [Concomitant]
     Indication: ROAD TRAFFIC ACCIDENT
  7. GENERIC ZESTRIL [Concomitant]
     Indication: HYPERTENSION
     Dosage: EVERY MORNING
  8. NEXIUM [Concomitant]
     Indication: DYSPEPSIA
  9. LEFLUNOMIDE [Concomitant]
     Indication: RHEUMATOID ARTHRITIS
     Dosage: 20 MG DAILY
  10. AMLODIPINE BESYLATE [Concomitant]
     Indication: HYPERTENSION
  11. ADVAIR [Concomitant]
     Indication: ASTHMA
     Dosage: 500/50 1 PUFF TWICE DAILY
  12. SINGULAR [Concomitant]
     Indication: ASTHMA
     Dosage: 10 MG DAILY

REACTIONS (15)
  - Rheumatoid arthritis [Recovering/Resolving]
  - Arthralgia [Unknown]
  - Nail discolouration [Unknown]
  - Asthma [Recovering/Resolving]
  - Blood cholesterol increased [Recovering/Resolving]
  - Urinary tract infection [Recovering/Resolving]
  - C-reactive protein increased [Unknown]
  - Drug ineffective [Unknown]
  - Nausea [Unknown]
  - Malaise [Unknown]
  - Wound haemorrhage [Unknown]
  - Insomnia [Recovering/Resolving]
  - Anxiety [Recovering/Resolving]
  - Panic attack [Unknown]
  - Pain [Unknown]
